FAERS Safety Report 4495548-8 (Version None)
Quarter: 2004Q4

REPORT INFORMATION
  Report Type: 
  Country: None (occurrence: None)
  Receive Date: 20041104
  Receipt Date: 20041022
  Transmission Date: 20050328
  Serious: Yes (Hospitalization)
  Sender: FDA-Public Use
  Company Number: JP-JNJFOC-20041006963

PATIENT
  Sex: Male

DRUGS (3)
  1. REMICADE [Suspect]
     Indication: RHEUMATOID ARTHRITIS
     Dosage: TOTAL OF FOUR INFUSIONS AT THE TIME OF ADVERSE EVENT ONSET.
     Route: 042
  2. RHEUMATREX [Suspect]
     Indication: DRUG USE FOR UNKNOWN INDICATION
     Route: 049
  3. INH [Concomitant]
     Route: 049

REACTIONS (2)
  - ATYPICAL MYCOBACTERIAL INFECTION [None]
  - HERPES ZOSTER [None]
